FAERS Safety Report 7488003-4 (Version None)
Quarter: 2011Q2

REPORT INFORMATION
  Report Type: 
  Country: None (occurrence: None)
  Receive Date: 20110518
  Receipt Date: 20110512
  Transmission Date: 20111010
  Serious: Yes (Other)
  Sender: FDA-Public Use
  Company Number: US-PFIZER INC-2011074495

PATIENT
  Sex: Male
  Weight: 113.38 kg

DRUGS (14)
  1. HYDROCHLOROTHIAZIDE [Concomitant]
     Dosage: 12.5 MG/20 MG
     Route: 048
     Dates: end: 20110226
  2. PERCOCET [Concomitant]
     Dosage: UNK
     Dates: end: 20110228
  3. SODIUM CHLORIDE [Suspect]
  4. POTASSIUM CHLORIDE [Concomitant]
     Dosage: 20 DF, UNK
     Dates: end: 20110225
  5. ZOCOR [Concomitant]
     Dosage: 40 MG, UNK
     Route: 048
     Dates: end: 20110226
  6. OXYCONTIN [Suspect]
  7. BUDESONIDE/FORMOTEROL FUMARATE [Concomitant]
     Dosage: UNK
     Dates: end: 20110228
  8. LISINOPRIL [Concomitant]
  9. CELEBREX [Suspect]
     Indication: ADENOMATOUS POLYPOSIS COLI
     Dosage: 400 MG, UNK
     Route: 048
     Dates: start: 20110228, end: 20110228
  10. ASPIRIN [Concomitant]
     Dosage: 81 MG, MONTHLY
     Dates: end: 20110220
  11. BUMETANIDE [Concomitant]
     Dosage: 2 MG, UNK
     Route: 048
     Dates: end: 20110225
  12. DECADRON [Suspect]
  13. ACETAMINOPHEN [Suspect]
  14. RELAFEN [Concomitant]
     Dosage: 750 MG, UNK
     Dates: end: 20110226

REACTIONS (5)
  - CARDIAC DISCOMFORT [None]
  - DIARRHOEA [None]
  - HEADACHE [None]
  - DRUG ADMINISTRATION ERROR [None]
  - DYSPNOEA [None]
